FAERS Safety Report 5556731-3 (Version None)
Quarter: 2007Q4

REPORT INFORMATION
  Report Type: 
  Country: None (occurrence: None)
  Receive Date: 20071211
  Receipt Date: 20011127
  Transmission Date: 20080405
  Serious: Yes (Hospitalization)
  Sender: FDA-Public Use
  Company Number: B0498587A

PATIENT
  Age: 19 Year
  Sex: Female

DRUGS (2)
  1. PAROXETINE HCL [Suspect]
     Indication: ANXIETY
  2. CYAMEMAZINE (FORMULATION UNKNOWN) (CYAMEMAZINE) [Suspect]
     Indication: ANXIETY
     Dosage: 15 MG, PER DAY;

REACTIONS (5)
  - CEREBRAL HAEMORRHAGE [None]
  - EPILEPSY [None]
  - HAEMANGIOMA [None]
  - LOSS OF CONSCIOUSNESS [None]
  - TONIC CLONIC MOVEMENTS [None]
